FAERS Safety Report 25524646 (Version 2)
Quarter: 2025Q3

REPORT INFORMATION
  Report Type: Spontaneous
  Country: US (occurrence: US)
  Receive Date: 20250707
  Receipt Date: 20250721
  Transmission Date: 20251021
  Serious: No
  Sender: ELI LILLY AND COMPANY
  Company Number: US-ELI_LILLY_AND_COMPANY-US202507001957

PATIENT
  Age: 44 Year
  Sex: Male

DRUGS (6)
  1. MOUNJARO [Suspect]
     Active Substance: TIRZEPATIDE
     Indication: Type 2 diabetes mellitus
     Route: 058
     Dates: start: 20250623
  2. MOUNJARO [Suspect]
     Active Substance: TIRZEPATIDE
     Indication: Type 2 diabetes mellitus
     Route: 058
     Dates: start: 20250623
  3. MOUNJARO [Suspect]
     Active Substance: TIRZEPATIDE
     Indication: Type 2 diabetes mellitus
     Route: 058
     Dates: start: 20250623
  4. MOUNJARO [Suspect]
     Active Substance: TIRZEPATIDE
     Indication: Type 2 diabetes mellitus
     Route: 058
     Dates: start: 20250623
  5. MOUNJARO [Suspect]
     Active Substance: TIRZEPATIDE
     Indication: Type 2 diabetes mellitus
     Route: 058
     Dates: start: 20250623
  6. DUPIXENT [Concomitant]
     Active Substance: DUPILUMAB
     Indication: Skin disorder

REACTIONS (2)
  - Accidental underdose [Unknown]
  - Injection site pain [Recovered/Resolved]

NARRATIVE: CASE EVENT DATE: 20250623
